FAERS Safety Report 20863612 (Version 1)
Quarter: 2022Q2

REPORT INFORMATION
  Report Type: Spontaneous
  Country: NL (occurrence: NL)
  Receive Date: 20220523
  Receipt Date: 20220523
  Transmission Date: 20220721
  Serious: Yes (Other)
  Sender: FDA-Public Use
  Company Number: NL-ROCHE-3086455

PATIENT
  Age: 28 Year
  Sex: Female

DRUGS (7)
  1. VONICOG ALFA [Suspect]
     Active Substance: VONICOG ALFA
     Indication: Von Willebrand^s disease
     Dosage: UNK
     Route: 042
  2. COAGULATION FACTOR VIIA RECOMBINANT HUMAN [Suspect]
     Active Substance: COAGULATION FACTOR VIIA RECOMBINANT HUMAN
     Indication: Von Willebrand^s disease
     Dosage: 90 MICROGRAM/KILOGRAM, Q2HR
     Route: 065
  3. EMICIZUMAB [Suspect]
     Active Substance: EMICIZUMAB
     Indication: Von Willebrand^s disease
     Dosage: 3 MILLIGRAM/KILOGRAM
     Route: 065
  4. EMICIZUMAB [Suspect]
     Active Substance: EMICIZUMAB
     Dosage: 6 MILLIGRAM/KILOGRAM
     Route: 065
  5. HEPARIN [Concomitant]
     Active Substance: HEPARIN SODIUM
     Indication: Von Willebrand^s disease
     Dosage: UNK
  6. PREDNISOLONE [Concomitant]
     Active Substance: PREDNISOLONE
     Indication: Von Willebrand^s disease
     Dosage: UNK
  7. CLEMASTINE [Concomitant]
     Active Substance: CLEMASTINE
     Indication: Von Willebrand^s disease
     Dosage: UNK

REACTIONS (3)
  - Pelvic venous thrombosis [Unknown]
  - Pulmonary embolism [Unknown]
  - Off label use [Unknown]
